FAERS Safety Report 11745930 (Version 1)
Quarter: 2015Q4

REPORT INFORMATION
  Report Type: Spontaneous
  Country: GB (occurrence: GB)
  Receive Date: 20151117
  Receipt Date: 20151117
  Transmission Date: 20160304
  Serious: Yes (Other)
  Sender: FDA-Public Use
  Company Number: GB-JNJFOC-20151111119

PATIENT
  Age: 56 Year
  Sex: Male
  Weight: 86 kg

DRUGS (10)
  1. GLIMEPIRIDE. [Concomitant]
     Active Substance: GLIMEPIRIDE
     Dosage: DOSE REPORTED AS 4 (UNITS UNSPECIFIED), PREFERABLY 20 MINUTES BEFORE FOOD.
     Route: 065
  2. METOCLOPRAMIDE. [Concomitant]
     Active Substance: METOCLOPRAMIDE
     Dosage: DOSE REPORTED AS 10 (UNITS UNSPECIFIED)
     Route: 065
  3. SITAGLIPTIN [Concomitant]
     Active Substance: SITAGLIPTIN
     Dosage: DOSE REPORTED AS 100 (UNITS UNSPECIFIED)
     Route: 065
  4. SIMVASTATIN. [Concomitant]
     Active Substance: SIMVASTATIN
     Dosage: DOSE REPORTED AS 40 (UNITS UNSPECIFIED), AT NIGHT
     Route: 065
  5. CITALOPRAM [Concomitant]
     Active Substance: CITALOPRAM HYDROBROMIDE
     Dosage: DOSE REPORTED AS 20 (UNITS UNSPECIFIED)
     Route: 065
  6. CANAGLIFLOZIN [Suspect]
     Active Substance: CANAGLIFLOZIN
     Indication: DIABETES MELLITUS
     Route: 048
     Dates: start: 20151020, end: 20151022
  7. BISOPROLOL [Concomitant]
     Active Substance: BISOPROLOL
     Dosage: DOSE REPORTED AS 2.5(UNITS UNSPECIFIED)
     Route: 065
  8. QUININE SULFATE. [Concomitant]
     Active Substance: QUININE SULFATE
     Dosage: DOSE REPORTED AS 200 (UNITS UNSPECIFIED), AT NIGHT
     Route: 065
  9. METFORMIN [Concomitant]
     Active Substance: METFORMIN HYDROCHLORIDE
     Dosage: DOSE REPORTED AS 1 (UNITS UNSPECIFIED)
     Route: 065
  10. ENALAPRIL [Concomitant]
     Active Substance: ENALAPRIL
     Dosage: DOSE REPORTED AS 2.5 (UNITS UNSPECIFIED)
     Route: 065

REACTIONS (1)
  - Angioedema [Not Recovered/Not Resolved]

NARRATIVE: CASE EVENT DATE: 20151022
